FAERS Safety Report 8637034 (Version 3)
Quarter: 2012Q4

REPORT INFORMATION
  Report Type: 
  Country: US (occurrence: US)
  Receive Date: 20120626
  Receipt Date: 20121004
  Transmission Date: 20130627
  Serious: Yes (Other)
  Sender: FDA-Public Use
  Company Number: US-PFIZER INC-2012152628

PATIENT
  Age: 52 Year
  Sex: Female
  Weight: 65.76 kg

DRUGS (4)
  1. LYRICA [Suspect]
     Indication: FIBROMYALGIA
     Dosage: one 100mg capsule in the  morning and  two 100mg capsules at night
     Route: 048
     Dates: start: 201103, end: 20120401
  2. LYRICA [Suspect]
     Dosage: 1 capsule of 100mg in morning, 1 capsule of 100mg in afternoon and 2 cap. of 100mg at night, 3x/day
     Route: 048
     Dates: start: 2012
  3. LYRICA [Suspect]
     Dosage: one capsule of 100mg in morning and two capsules of 100mg at night
     Dates: start: 20120930
  4. HYDROCHLOROTHIAZIDE [Concomitant]
     Indication: HYPERTENSION
     Dosage: 12.5 mg, daily

REACTIONS (5)
  - Urinary tract infection [Unknown]
  - Pain [Unknown]
  - Muscle spasms [Unknown]
  - Hypoaesthesia [Unknown]
  - Hypokinesia [Unknown]
